FAERS Safety Report 10929824 (Version 1)
Quarter: 2015Q1

REPORT INFORMATION
  Report Type: Spontaneous
  Country: FR (occurrence: FR)
  Receive Date: 20150319
  Receipt Date: 20150319
  Transmission Date: 20150721
  Serious: Yes (Hospitalization)
  Sender: FDA-Public Use
  Company Number: FR-SA-2015SA032969

PATIENT
  Age: 9 Year
  Sex: Female

DRUGS (10)
  1. PREDNISOLONE. [Concomitant]
     Active Substance: PREDNISOLONE
     Dates: start: 20140506
  2. METHOTREXATE [Concomitant]
     Active Substance: METHOTREXATE
     Indication: LEUKAEMIA
     Route: 037
     Dates: start: 20140502
  3. FASTURTEC [Suspect]
     Active Substance: RASBURICASE
     Indication: ACUTE LYMPHOCYTIC LEUKAEMIA
     Dosage: POWDER AND SOLVENT FOR PERFUSION
     Route: 042
     Dates: start: 20140430, end: 20140430
  4. TAZOCILLINE [Concomitant]
     Active Substance: PIPERACILLIN SODIUM\TAZOBACTAM SODIUM
     Dates: start: 20140430
  5. AMIKLIN [Concomitant]
     Active Substance: AMIKACIN SULFATE
     Dates: start: 20140430
  6. KIDROLASE [Concomitant]
     Active Substance: ASPARAGINASE
     Indication: LEUKAEMIA
     Dates: start: 20140506
  7. VINCRISTINE [Concomitant]
     Active Substance: VINCRISTINE
     Indication: LEUKAEMIA
     Dates: start: 20140506
  8. BACTRIM [Suspect]
     Active Substance: SULFAMETHOXAZOLE\TRIMETHOPRIM
     Route: 042
     Dates: start: 20140507, end: 20140509
  9. DAUNORUBICINE [Concomitant]
     Active Substance: DAUNORUBICIN
     Indication: LEUKAEMIA
     Dates: start: 20140506
  10. FASTURTEC [Suspect]
     Active Substance: RASBURICASE
     Indication: ACUTE LYMPHOCYTIC LEUKAEMIA
     Dosage: POWDER AND SOLVENT FOR PERFUSION
     Route: 042
     Dates: start: 20140506, end: 20140506

REACTIONS (1)
  - Haemolytic anaemia [Recovered/Resolved]

NARRATIVE: CASE EVENT DATE: 20140508
